FAERS Safety Report 12101728 (Version 1)
Quarter: 2016Q1

REPORT INFORMATION
  Report Type: Spontaneous
  Country: ES (occurrence: ES)
  Receive Date: 20160222
  Receipt Date: 20160222
  Transmission Date: 20160526
  Serious: Yes (Hospitalization, Other)
  Sender: FDA-Public Use
  Company Number: ES-GILEAD-2016-0198266

PATIENT
  Age: 70 Year
  Sex: Female

DRUGS (15)
  1. HARVONI [Suspect]
     Active Substance: LEDIPASVIR\SOFOSBUVIR
     Indication: HEPATIC CIRRHOSIS
     Dosage: 1 DF, UNK
     Route: 065
  2. LORAZEPAM. [Concomitant]
     Active Substance: LORAZEPAM
  3. PARACETAMOL [Concomitant]
     Active Substance: ACETAMINOPHEN
  4. ZOLPIDEM [Concomitant]
     Active Substance: ZOLPIDEM\ZOLPIDEM TARTRATE
  5. ACFOL [Concomitant]
     Active Substance: FOLIC ACID
  6. FORXIGA [Concomitant]
     Active Substance: DAPAGLIFLOZIN
  7. NOVORAPID [Concomitant]
     Active Substance: INSULIN ASPART
  8. FUROSEMIDA                         /00032601/ [Concomitant]
     Active Substance: FUROSEMIDE
     Dosage: 40 MG, QD
  9. LACTULOSA [Concomitant]
     Active Substance: LACTULOSE
  10. AUXINA A E [Concomitant]
  11. VERSATIS [Concomitant]
     Active Substance: LIDOCAINE
  12. ATENOLOL. [Concomitant]
     Active Substance: ATENOLOL
  13. ALDACTONE [Concomitant]
     Active Substance: SPIRONOLACTONE
     Dosage: 50 MG, QD
  14. OMEPRAZOL                          /00661201/ [Concomitant]
     Active Substance: OMEPRAZOLE
  15. LANTUS [Concomitant]
     Active Substance: INSULIN GLARGINE

REACTIONS (2)
  - Hypertrophic cardiomyopathy [Unknown]
  - Atrioventricular block [Unknown]
